FAERS Safety Report 12431828 (Version 1)
Quarter: 2016Q2

REPORT INFORMATION
  Report Type: Spontaneous
  Country: FR (occurrence: FR)
  Receive Date: 20160603
  Receipt Date: 20160603
  Transmission Date: 20160815
  Serious: Yes (Other)
  Sender: FDA-Public Use
  Company Number: FR-009507513-1606FRA000055

PATIENT
  Age: 68 Year
  Sex: Female

DRUGS (5)
  1. HYDROCORTISONE. [Concomitant]
     Active Substance: HYDROCORTISONE
     Indication: HYPOPHYSITIS
     Dosage: UNK
  2. LEVOTHYROX [Concomitant]
     Active Substance: LEVOTHYROXINE
     Indication: HYPOPHYSITIS
     Dosage: UNK
  3. PEMBROLIZUMAB. [Suspect]
     Active Substance: PEMBROLIZUMAB
     Indication: NASAL SINUS CANCER
     Dosage: 2 MG/KG, INFUSION EVERY 3 WEEKS
     Dates: start: 201408, end: 2015
  4. PEMBROLIZUMAB. [Suspect]
     Active Substance: PEMBROLIZUMAB
     Dosage: 2 MG/KG, INFUSION EVERY 3 WEEKS
     Dates: start: 2015
  5. IPILIMUMAB [Concomitant]
     Active Substance: IPILIMUMAB

REACTIONS (3)
  - Hypokalaemia [Unknown]
  - Colitis microscopic [Recovering/Resolving]
  - Weight decreased [Unknown]
